FAERS Safety Report 14602739 (Version 1)
Quarter: 2018Q1

REPORT INFORMATION
  Report Type: Spontaneous
  Country: FR (occurrence: FR)
  Receive Date: 20180306
  Receipt Date: 20180306
  Transmission Date: 20180509
  Serious: Yes (Other)
  Sender: FDA-Public Use
  Company Number: PHHY2018FR016619

PATIENT
  Age: 62 Year
  Sex: Male

DRUGS (2)
  1. PREDNISONE. [Suspect]
     Active Substance: PREDNISONE
     Dosage: 14 MG, UNK
     Route: 065
  2. PREDNISONE. [Suspect]
     Active Substance: PREDNISONE
     Indication: POLYMYALGIA RHEUMATICA
     Dosage: 20 MG, UNK
     Route: 065

REACTIONS (8)
  - Blindness transient [Recovered/Resolved]
  - Visual field defect [Recovered/Resolved]
  - Chorioretinopathy [Recovered/Resolved]
  - Retinal detachment [Recovered/Resolved]
  - Metamorphopsia [Recovered/Resolved]
  - Blindness [Recovered/Resolved]
  - Maculopathy [Recovered/Resolved]
  - Dyschromatopsia [Recovered/Resolved]
